FAERS Safety Report 11936035 (Version 1)
Quarter: 2016Q1

REPORT INFORMATION
  Report Type: Report from Study
  Country: US (occurrence: US)
  Receive Date: 20160121
  Receipt Date: 20160121
  Transmission Date: 20160526
  Serious: No
  Sender: FDA-Public Use
  Company Number: US-AMGEN-USASL2015120860

PATIENT
  Age: 79 Year
  Sex: Female

DRUGS (2)
  1. POMALIDOMIDE [Concomitant]
     Active Substance: POMALIDOMIDE
     Dosage: UNK
  2. KYPROLIS [Suspect]
     Active Substance: CARFILZOMIB
     Indication: PLASMA CELL MYELOMA
     Dosage: UNK
     Route: 065

REACTIONS (5)
  - Confusional state [Recovered/Resolved]
  - Cough [Unknown]
  - Decreased activity [Recovered/Resolved]
  - Weight increased [Unknown]
  - Foreign body [Unknown]

NARRATIVE: CASE EVENT DATE: 2015
